FAERS Safety Report 25081119 (Version 1)
Quarter: 2025Q1

REPORT INFORMATION
  Report Type: Spontaneous
  Country: PL (occurrence: PL)
  Receive Date: 20250315
  Receipt Date: 20250315
  Transmission Date: 20250408
  Serious: Yes (Other)
  Sender: AMGEN
  Company Number: PL-AMGEN-POLSP2025046826

PATIENT
  Age: 42 Year
  Sex: Female

DRUGS (1)
  1. NPLATE [Suspect]
     Active Substance: ROMIPLOSTIM
     Indication: Product used for unknown indication
     Route: 065
     Dates: start: 20231201

REACTIONS (1)
  - Thrombocytopenia [Unknown]
